FAERS Safety Report 5910619-4 (Version None)
Quarter: 2008Q4

REPORT INFORMATION
  Report Type: 
  Country: None (occurrence: None)
  Receive Date: 20081007
  Receipt Date: 20080929
  Transmission Date: 20090506
  Serious: Yes (Hospitalization)
  Sender: FDA-Public Use
  Company Number: FR-NOVOPROD-279993

PATIENT
  Age: 66 Year
  Sex: Male

DRUGS (3)
  1. NOVONORM [Suspect]
     Indication: MEDICATION ERROR
     Dosage: 1 MG, SINGLE
     Dates: start: 20080809
  2. COVERSYL                           /00790701/ [Concomitant]
     Dosage: 5 MG, UNK
     Dates: start: 20080809
  3. TEMERIT                            /01339101/ [Concomitant]
     Dosage: 5 MG, QD
     Dates: start: 20080809

REACTIONS (2)
  - HYPOTENSION [None]
  - WRONG DRUG ADMINISTERED [None]
